FAERS Safety Report 4304170-5 (Version None)
Quarter: 2004Q1

REPORT INFORMATION
  Report Type: 
  Country: None (occurrence: None)
  Receive Date: 20040224
  Receipt Date: 20030727
  Transmission Date: 20041129
  Serious: Yes (Hospitalization)
  Sender: FDA-Public Use
  Company Number: 2003-DE-01899DE

PATIENT
  Age: 64 Year
  Sex: Female

DRUGS (4)
  1. SIFROL (TA) (PRAMIPEXOLE) [Suspect]
     Indication: PARKINSON'S DISEASE
     Dosage: 0.54 MG (NR)
     Route: 048
     Dates: start: 20020101
  2. LEVOCARB-GRY (SINEMET /ET/) (TA) [Concomitant]
  3. LEVOVOPA [Concomitant]
  4. CARBIDOPA [Concomitant]

REACTIONS (4)
  - ASTHMA [None]
  - CARDIAC FAILURE [None]
  - COR PULMONALE [None]
  - DYSPNOEA AT REST [None]
